FAERS Safety Report 4839583-6 (Version None)
Quarter: 2005Q4

REPORT INFORMATION
  Report Type: 
  Country: None (occurrence: None)
  Receive Date: 20051125
  Receipt Date: 20051114
  Transmission Date: 20060501
  Serious: Yes (Hospitalization)
  Sender: FDA-Public Use
  Company Number: 2005-134777-NL

PATIENT
  Age: 40 Year
  Sex: Female

DRUGS (5)
  1. MIRTAZAPINE [Suspect]
     Dosage: 60 MG, ORAL
     Route: 048
     Dates: start: 20050701, end: 20050821
  2. MIRTAZAPINE [Suspect]
     Dosage: 60 MG, ORAL
     Route: 048
     Dates: end: 20050822
  3. MELPERONE [Concomitant]
  4. IBUPROFEN [Concomitant]
  5. POTASSIUM IODINE [Concomitant]

REACTIONS (2)
  - ALOPECIA [None]
  - SUICIDE ATTEMPT [None]
